FAERS Safety Report 24528781 (Version 1)
Quarter: 2024Q4

REPORT INFORMATION
  Report Type: Spontaneous
  Country: US (occurrence: US)
  Receive Date: 20241021
  Receipt Date: 20241021
  Transmission Date: 20250114
  Serious: No
  Sender: PERRIGO
  Company Number: US-PERRIGO-24US003538

PATIENT

DRUGS (1)
  1. DOXYLAMINE SUCCINATE [Suspect]
     Active Substance: DOXYLAMINE SUCCINATE
     Indication: Sleep disorder
     Dosage: UNK, SINGLE
     Route: 048

REACTIONS (2)
  - Drug ineffective [Unknown]
  - Incorrect dose administered [Unknown]
